FAERS Safety Report 11788488 (Version 1)
Quarter: 2015Q4

REPORT INFORMATION
  Report Type: Report from Study
  Country: GR (occurrence: GR)
  Receive Date: 20151201
  Receipt Date: 20151201
  Transmission Date: 20160305
  Serious: Yes (Death, Other)
  Sender: FDA-Public Use
  Company Number: GR-ROCHE-1666760

PATIENT

DRUGS (1)
  1. TOCILIZUMAB [Suspect]
     Active Substance: TOCILIZUMAB
     Indication: RHEUMATOID ARTHRITIS
     Route: 042

REACTIONS (15)
  - Staphylococcal infection [Unknown]
  - Lower respiratory tract infection [Unknown]
  - Upper respiratory tract infection [Unknown]
  - Lung neoplasm malignant [Unknown]
  - Hypersensitivity [Unknown]
  - Histiocytosis haematophagic [Fatal]
  - Pleurisy [Unknown]
  - Pancreatitis [Unknown]
  - Thrombocytopenia [Unknown]
  - Transaminases increased [Unknown]
  - Diverticulitis [Unknown]
  - Leukopenia [Unknown]
  - Pneumonia [Unknown]
  - Cytomegalovirus infection [Unknown]
  - Drug ineffective [Unknown]
